FAERS Safety Report 12993385 (Version 1)
Quarter: 2016Q4

REPORT INFORMATION
  Report Type: Spontaneous
  Country: US (occurrence: US)
  Receive Date: 20161201
  Receipt Date: 20161201
  Transmission Date: 20170207
  Serious: No
  Sender: FDA-Public Use
  Company Number: None

PATIENT
  Age: 30 Year
  Sex: Male
  Weight: 85.8 kg

DRUGS (1)
  1. HALOPERIDOL. [Suspect]
     Active Substance: HALOPERIDOL
     Indication: AGITATION
     Route: 030
     Dates: start: 20160801, end: 20160801

REACTIONS (2)
  - Dystonia [None]
  - Unresponsive to stimuli [None]

NARRATIVE: CASE EVENT DATE: 20160801
